FAERS Safety Report 5471603-0 (Version None)
Quarter: 2007Q3

REPORT INFORMATION
  Report Type: 
  Country: None (occurrence: None)
  Receive Date: 20070928
  Receipt Date: 20070917
  Transmission Date: 20080115
  Serious: Yes (Hospitalization)
  Sender: FDA-Public Use
  Company Number: FR-PFIZER INC-2007077836

PATIENT
  Sex: Male

DRUGS (8)
  1. XANAX [Suspect]
     Indication: ANXIETY
     Route: 048
     Dates: start: 20070705, end: 20070713
  2. PAROXETINE [Suspect]
     Indication: MAJOR DEPRESSION
     Route: 048
     Dates: start: 20070601, end: 20070713
  3. ENOXAPARIN SODIUM [Concomitant]
     Route: 058
  4. CARDENSIEL [Concomitant]
     Route: 048
     Dates: start: 20070601
  5. CORDARONE [Concomitant]
     Indication: CARDIAC FAILURE
     Route: 048
     Dates: start: 20070601
  6. TRIATEC [Concomitant]
     Indication: CARDIAC FAILURE
     Route: 048
     Dates: start: 20070601
  7. INIPOMP [Concomitant]
     Route: 048
     Dates: start: 20070705
  8. PLAVIX [Concomitant]
     Route: 048
     Dates: start: 20070601

REACTIONS (2)
  - CHOLESTASIS [None]
  - CYTOLYTIC HEPATITIS [None]
